FAERS Safety Report 5910714-X (Version None)
Quarter: 2008Q4

REPORT INFORMATION
  Report Type: 
  Country: None (occurrence: None)
  Receive Date: 20081006
  Receipt Date: 20081006
  Transmission Date: 20090506
  Serious: Yes (Life-Threatening, Hospitalization, Disabling)
  Sender: FDA-Public Use
  Company Number: None

PATIENT
  Age: 31 Year
  Sex: Male
  Weight: 81.6475 kg

DRUGS (5)
  1. RITALIN [Suspect]
     Indication: FATIGUE
     Dosage: 20 MG 4 DAY PO
     Route: 048
     Dates: start: 20080101, end: 20080902
  2. AMBIEN [Concomitant]
  3. SEROQUEL [Concomitant]
  4. LAMICTAL [Concomitant]
  5. KLONOPIN [Concomitant]

REACTIONS (1)
  - GRAND MAL CONVULSION [None]
